FAERS Safety Report 9367468 (Version 1)
Quarter: 2013Q2

REPORT INFORMATION
  Report Type: Spontaneous
  Country: US (occurrence: US)
  Receive Date: 20130625
  Receipt Date: 20130625
  Transmission Date: 20140414
  Serious: No
  Sender: FDA-Public Use
  Company Number: US-ASTELLAS-2012US007662

PATIENT
  Age: 92 Year
  Sex: Male

DRUGS (1)
  1. VESICARE [Suspect]
     Indication: HYPERTONIC BLADDER
     Dosage: 5 MG, UID/QD
     Route: 048
     Dates: start: 2012

REACTIONS (6)
  - Hot flush [Unknown]
  - Sleep disorder [Unknown]
  - Depression [Unknown]
  - Decreased appetite [Unknown]
  - Constipation [Unknown]
  - Dry mouth [Unknown]
